FAERS Safety Report 9775142 (Version 2)
Quarter: 2015Q3

REPORT INFORMATION
  Report Type: Spontaneous
  Country: US (occurrence: US)
  Receive Date: 20131220
  Receipt Date: 20150721
  Transmission Date: 20151125
  Serious: Yes (Other)
  Sender: FDA-Public Use
  Company Number: US-GILEAD-2010-0026401

PATIENT

DRUGS (7)
  1. NICOTINAMIDE/PYRIDOXINE HYDROCHLORIDE/TYROSINE [Concomitant]
  2. VORICONAZOLE. [Concomitant]
     Active Substance: VORICONAZOLE
  3. VANCOMYCIN [Concomitant]
     Active Substance: VANCOMYCIN
  4. RANITIDINE [Concomitant]
     Active Substance: RANITIDINE\RANITIDINE HYDROCHLORIDE
  5. CYCLOSPORIN [Concomitant]
     Active Substance: CYCLOSPORINE
  6. PENTAMIDINE [Concomitant]
     Active Substance: PENTAMIDINE
  7. VISTIDE [Suspect]
     Active Substance: CIDOFOVIR
     Indication: CYTOMEGALOVIRUS CHORIORETINITIS

REACTIONS (1)
  - Seizure [Unknown]
